FAERS Safety Report 23699526 (Version 1)
Quarter: 2024Q2

REPORT INFORMATION
  Report Type: Spontaneous
  Country: US (occurrence: US)
  Receive Date: 20240402
  Receipt Date: 20240402
  Transmission Date: 20240716
  Serious: Yes (Hospitalization)
  Sender: FDA-Public Use
  Company Number: US-BRISTOL-MYERS SQUIBB COMPANY-2024-051857

PATIENT
  Age: 85 Year
  Sex: Female
  Weight: 68.03 kg

DRUGS (1)
  1. POMALYST [Suspect]
     Active Substance: POMALIDOMIDE
     Indication: Plasma cell myeloma
     Dosage: FREQUENCY: DAILY FOR 21 DAYS ON, THEN 7 DAYS ON
     Route: 048
     Dates: start: 20240122

REACTIONS (2)
  - Hospitalisation [Unknown]
  - Off label use [Unknown]
